FAERS Safety Report 6674663-4 (Version None)
Quarter: 2010Q2

REPORT INFORMATION
  Report Type: 
  Country: None (occurrence: None)
  Receive Date: 20100409
  Receipt Date: 20100406
  Transmission Date: 20101027
  Serious: Yes (Other)
  Sender: FDA-Public Use
  Company Number: US-B.I. PHARMACEUTICALS,INC./RIDGEFIELD-2010-BP-03561BP

PATIENT
  Sex: Female

DRUGS (1)
  1. COMBIVENT [Suspect]
     Indication: CHRONIC OBSTRUCTIVE PULMONARY DISEASE
     Dosage: 8 PUF
     Route: 055
     Dates: start: 19980101, end: 20100324

REACTIONS (6)
  - DYSPNOEA [None]
  - DYSPNOEA EXERTIONAL [None]
  - HYPERTENSION [None]
  - MYOCARDIAL INFARCTION [None]
  - OSTEOPOROSIS [None]
  - PALPITATIONS [None]
